FAERS Safety Report 10247430 (Version 1)
Quarter: 2014Q2

REPORT INFORMATION
  Report Type: Spontaneous
  Country: US (occurrence: None)
  Receive Date: 20140617
  Receipt Date: 20140617
  Transmission Date: 20141212
  Serious: Yes (Hospitalization)
  Sender: FDA-Public Use
  Company Number: PD-195

PATIENT
  Age: 49 Year
  Sex: Female

DRUGS (2)
  1. SUDAFED [Suspect]
     Indication: NASAL CONGESTION
     Dosage: PRN?5 DAYS PRIOR TO SYMPTOMS
  2. BIRTH CONTROL PILLS [Concomitant]

REACTIONS (1)
  - Colitis ischaemic [None]
